FAERS Safety Report 13279357 (Version 1)
Quarter: 2017Q1

REPORT INFORMATION
  Report Type: Report from Study
  Country: None (occurrence: US)
  Receive Date: 20170228
  Receipt Date: 20170228
  Transmission Date: 20170428
  Serious: No
  Sender: FDA-Public Use
  Company Number: US-AMAG PHARMACEUTICALS, INC.-AMAG201601294

PATIENT

DRUGS (3)
  1. PRENAPLUS [Concomitant]
     Indication: PREGNANCY
     Dosage: UNK
     Route: 048
     Dates: start: 20160131
  2. MAKENA [Suspect]
     Active Substance: HYDROXYPROGESTERONE CAPROATE
     Indication: PRODUCT USED FOR UNKNOWN INDICATION
     Dosage: 250 MG/ML, UNK
     Route: 030
     Dates: start: 20160701, end: 20160930
  3. LEVOTHYROXINE. [Concomitant]
     Active Substance: LEVOTHYROXINE
     Indication: HYPOTHYROIDISM
     Dosage: 50 MCG/DL, UNK
     Dates: start: 20130808

REACTIONS (2)
  - Vomiting in pregnancy [Recovered/Resolved]
  - Dyspepsia [Recovered/Resolved]

NARRATIVE: CASE EVENT DATE: 20160925
